FAERS Safety Report 6205991-4 (Version None)
Quarter: 2009Q2

REPORT INFORMATION
  Report Type: 
  Country: None (occurrence: None)
  Receive Date: 20090527
  Receipt Date: 20090527
  Transmission Date: 20091009
  Serious: Yes (Other)
  Sender: FDA-Public Use
  Company Number: None

PATIENT
  Age: 38 Year
  Sex: Female
  Weight: 79.3795 kg

DRUGS (1)
  1. AVENNO POSITIVLELY AGELESS WARMING SCRUB [Suspect]

REACTIONS (3)
  - CHEMICAL BURNS OF EYE [None]
  - EYE SWELLING [None]
  - INCORRECT ROUTE OF DRUG ADMINISTRATION [None]
